FAERS Safety Report 4568448-2 (Version None)
Quarter: 2005Q1

REPORT INFORMATION
  Report Type: 
  Country: None (occurrence: None)
  Receive Date: 20050131
  Receipt Date: 20050125
  Transmission Date: 20050727
  Serious: Yes (Hospitalization)
  Sender: FDA-Public Use
  Company Number: 2005-01-1599

PATIENT
  Sex: Female

DRUGS (3)
  1. CLARINEX [Suspect]
     Indication: ECZEMA
     Dosage: ORAL
     Route: 048
  2. CLARINEX [Suspect]
     Indication: PRURITUS
     Dosage: ORAL
     Route: 048
  3. FUCIDINE CAP [Concomitant]

REACTIONS (3)
  - FATIGUE [None]
  - TREMOR [None]
  - VISUAL DISTURBANCE [None]
